FAERS Safety Report 4515581-7 (Version None)
Quarter: 2004Q4

REPORT INFORMATION
  Report Type: 
  Country: None (occurrence: None)
  Receive Date: 20040928
  Receipt Date: 20040708
  Transmission Date: 20050328
  Serious: Yes (Hospitalization, Other)
  Sender: FDA-Public Use
  Company Number: 2004-03025

PATIENT
  Age: 57 Year
  Sex: Male
  Weight: 74.8 kg

DRUGS (8)
  1. INFED [Suspect]
     Indication: ANAEMIA
     Dosage: SEE IMAGE
     Route: 042
     Dates: start: 20020101, end: 20020101
  2. INFED [Suspect]
     Indication: ANAEMIA
     Dosage: SEE IMAGE
     Route: 042
     Dates: start: 20030101, end: 20030101
  3. INFED [Suspect]
     Indication: ANAEMIA
     Dosage: SEE IMAGE
     Route: 042
     Dates: start: 20040501, end: 20040501
  4. ASPIRIN [Suspect]
     Dosage: 81 MG, DAILY, ORAL
     Route: 048
     Dates: start: 19990101, end: 20040501
  5. LOMOTIL [Concomitant]
  6. AMBIEN OR SONATA (ZOLPIDEM TARTRATE) [Concomitant]
  7. SAW PALMETTO (SERENOA REPENS) [Concomitant]
  8. ONE-A DAY (THIAMINE MONONITRATE, NICOTINAMIDE, RIBOFLAVIN, RETINOL, PY [Concomitant]

REACTIONS (4)
  - DIARRHOEA HAEMORRHAGIC [None]
  - EPISTAXIS [None]
  - FATIGUE [None]
  - GASTROINTESTINAL HAEMORRHAGE [None]
